FAERS Safety Report 4338042-7 (Version None)
Quarter: 2004Q2

REPORT INFORMATION
  Report Type: 
  Country: None (occurrence: None)
  Receive Date: 20040407
  Receipt Date: 20040323
  Transmission Date: 20050107
  Serious: Yes (Other)
  Sender: FDA-Public Use
  Company Number: B0328293A

PATIENT
  Sex: 0

DRUGS (2)
  1. LANOXIN [Suspect]
     Indication: ATRIAL FIBRILLATION
     Dosage: 500 MCG
  2. HEPARIN [Concomitant]

REACTIONS (1)
  - EMBOLIC STROKE [None]
